FAERS Safety Report 8613942 (Version 4)
Quarter: 2013Q2

REPORT INFORMATION
  Report Type: Spontaneous
  Country: US (occurrence: US)
  Receive Date: 20120614
  Receipt Date: 20130509
  Transmission Date: 20140414
  Serious: Yes (Other)
  Sender: FDA-Public Use
  Company Number: PHEH2012US011848

PATIENT
  Sex: Male

DRUGS (7)
  1. AREDIA [Suspect]
     Indication: HYPERCALCAEMIA
  2. AREDIA [Suspect]
     Indication: BONE LESION
  3. PRILOSEC [Concomitant]
     Dosage: 20 G, QD
  4. BIAXIN [Concomitant]
     Dosage: 500 MG, TID
  5. ADRIAMYCIN [Concomitant]
     Dosage: 16 MG
  6. VINCRISTINE [Concomitant]
     Dosage: 0.7 MG
  7. DECADRON [Concomitant]
     Dosage: 4 MG

REACTIONS (13)
  - Duodenal ulcer [Unknown]
  - Metastases to bone [Unknown]
  - Pathological fracture [Unknown]
  - Haemorrhoids [Unknown]
  - Diabetes mellitus [Unknown]
  - Plasma cell myeloma [Unknown]
  - Spinal osteoarthritis [Unknown]
  - Oral candidiasis [Unknown]
  - Anaemia [Unknown]
  - Leukocytosis [Unknown]
  - Thrombocytopenia [Unknown]
  - Intervertebral disc degeneration [Unknown]
  - Constipation [Unknown]
